FAERS Safety Report 11755783 (Version 1)
Quarter: 2015Q4

REPORT INFORMATION
  Report Type: Spontaneous
  Country: US (occurrence: US)
  Receive Date: 20151119
  Receipt Date: 20151119
  Transmission Date: 20160304
  Serious: No
  Sender: FDA-Public Use
  Company Number: US-AMARIN PHARMA, INC.-2015AMR000107

PATIENT
  Sex: Female

DRUGS (1)
  1. VASCEPA [Suspect]
     Active Substance: ICOSAPENT ETHYL
     Indication: ANTIINFLAMMATORY THERAPY
     Route: 048
     Dates: start: 20150722

REACTIONS (2)
  - Arthralgia [Not Recovered/Not Resolved]
  - Intentional underdose [Unknown]
